FAERS Safety Report 8922309 (Version 2)
Quarter: 2012Q4

REPORT INFORMATION
  Report Type: Report from Study
  Country: US (occurrence: US)
  Receive Date: 20121126
  Receipt Date: 20121130
  Transmission Date: 20130627
  Serious: Yes (Hospitalization, Disabling, Other)
  Sender: FDA-Public Use
  Company Number: US-ACTELION-A-US2012-74898

PATIENT
  Age: 72 Year
  Sex: Female

DRUGS (3)
  1. TRACLEER [Suspect]
     Indication: PULMONARY ARTERIAL HYPERTENSION
     Dosage: UNK
     Route: 048
  2. SILDENAFIL [Concomitant]
  3. PRADAXA [Concomitant]

REACTIONS (3)
  - Cerebrovascular accident [Recovering/Resolving]
  - Aphasia [Recovering/Resolving]
  - Paralysis [Recovering/Resolving]
